FAERS Safety Report 4871721-1 (Version None)
Quarter: 2006Q1

REPORT INFORMATION
  Report Type: 
  Country: None (occurrence: None)
  Receive Date: 20060104
  Receipt Date: 20041203
  Transmission Date: 20060701
  Serious: No
  Sender: FDA-Public Use
  Company Number: US-BRISTOL-MYERS SQUIBB COMPANY-12783668

PATIENT
  Age: 62 Year
  Sex: Female
  Weight: 70 kg

DRUGS (10)
  1. DESYREL [Suspect]
     Indication: DEPRESSION
     Route: 048
     Dates: start: 20041001
  2. HEPARIN [Suspect]
     Route: 051
  3. PLAVIX [Suspect]
     Indication: STENT PLACEMENT
     Route: 048
     Dates: start: 20040904
  4. PLAVIX [Suspect]
     Indication: CORONARY ARTERY OCCLUSION
     Route: 048
     Dates: start: 20040904
  5. EFFEXOR [Concomitant]
     Indication: DEPRESSION
     Dates: start: 20041004
  6. ALDACTAZIDE [Concomitant]
  7. VALIUM [Concomitant]
  8. PRILOSEC [Concomitant]
  9. OXYGEN [Concomitant]
     Route: 045
  10. PHENERGAN [Concomitant]

REACTIONS (4)
  - ABDOMINAL MASS [None]
  - ABDOMINAL PAIN [None]
  - CLOSTRIDIAL INFECTION [None]
  - CONTUSION [None]
